FAERS Safety Report 14540156 (Version 1)
Quarter: 2018Q1

REPORT INFORMATION
  Report Type: Spontaneous
  Country: US (occurrence: US)
  Receive Date: 20180215
  Receipt Date: 20180215
  Transmission Date: 20180509
  Serious: Yes (Hospitalization)
  Sender: FDA-Public Use
  Company Number: None

PATIENT
  Age: 55 Year
  Sex: Female

DRUGS (1)
  1. CAPECITABINE 500MG WESTWARD [Suspect]
     Active Substance: CAPECITABINE
     Indication: APPENDIX CANCER
     Dosage: 2 TABLETS TWICE DAILY FOR 14 DAYS ON AND 7 DAYS OFF PO
     Route: 048
     Dates: start: 20170808

REACTIONS (2)
  - Pyrexia [None]
  - Epistaxis [None]

NARRATIVE: CASE EVENT DATE: 20180115
